FAERS Safety Report 24926321 (Version 1)
Quarter: 2025Q1

REPORT INFORMATION
  Report Type: Report from Study
  Country: DE (occurrence: DE)
  Receive Date: 20250205
  Receipt Date: 20250205
  Transmission Date: 20250408
  Serious: No
  Sender: ROCHE
  Company Number: DE-ML39632-2425262-0

PATIENT
  Age: 37 Year
  Sex: Female

DRUGS (13)
  1. OCREVUS [Suspect]
     Active Substance: OCRELIZUMAB
     Indication: Relapsing multiple sclerosis
     Route: 040
     Dates: start: 20190226, end: 20190312
  2. OCREVUS [Suspect]
     Active Substance: OCRELIZUMAB
     Route: 040
     Dates: start: 20190918, end: 20211014
  3. PREDNISOLONE [Concomitant]
     Active Substance: PREDNISOLONE
     Route: 040
     Dates: start: 20190226, end: 20190226
  4. PREDNISOLONE [Concomitant]
     Active Substance: PREDNISOLONE
     Route: 048
     Dates: start: 20190312, end: 20190312
  5. SERTRALINE HYDROCHLORIDE [Concomitant]
     Active Substance: SERTRALINE HYDROCHLORIDE
     Indication: Depression
     Dates: start: 201910
  6. RANITIDINE HYDROCHLORIDE [Concomitant]
     Active Substance: RANITIDINE HYDROCHLORIDE
     Route: 048
     Dates: start: 20190225, end: 20190227
  7. RANITIDINE HYDROCHLORIDE [Concomitant]
     Active Substance: RANITIDINE HYDROCHLORIDE
     Route: 048
     Dates: start: 20190311, end: 20190313
  8. EBASTINE [Concomitant]
     Active Substance: EBASTINE
     Route: 048
     Dates: start: 20190311, end: 20190313
  9. EBASTINE [Concomitant]
     Active Substance: EBASTINE
     Route: 048
     Dates: start: 20190225, end: 20190227
  10. ACYCLOVIR [Concomitant]
     Active Substance: ACYCLOVIR
     Indication: Herpes simplex
     Route: 048
     Dates: start: 20200226, end: 20200303
  11. ACYCLOVIR [Concomitant]
     Active Substance: ACYCLOVIR
     Route: 048
     Dates: start: 20190911, end: 20190918
  12. CHOLECALCIFEROL [Concomitant]
     Active Substance: CHOLECALCIFEROL
     Indication: Vitamin D deficiency
     Route: 048
     Dates: start: 20140912
  13. TRIMIPRAMINE [Concomitant]
     Active Substance: TRIMIPRAMINE
     Dates: start: 201910

REACTIONS (1)
  - Influenza [Recovered/Resolved]

NARRATIVE: CASE EVENT DATE: 20240101
